FAERS Safety Report 7370594-5 (Version None)
Quarter: 2011Q1

REPORT INFORMATION
  Report Type: 
  Country: None (occurrence: None)
  Receive Date: 20110323
  Receipt Date: 20110316
  Transmission Date: 20110831
  Serious: Yes (Hospitalization)
  Sender: FDA-Public Use
  Company Number: US-AMGEN-USASP2011006101

PATIENT
  Age: 34 Year
  Sex: Female

DRUGS (2)
  1. REMICADE [Concomitant]
  2. ENBREL [Suspect]
     Indication: JUVENILE ARTHRITIS
     Dosage: 50 MG, QWK
     Dates: start: 20020101

REACTIONS (6)
  - POST PROCEDURAL COMPLICATION [None]
  - HEPATIC FAILURE [None]
  - UPPER LIMB FRACTURE [None]
  - RESPIRATORY FAILURE [None]
  - BONE EROSION [None]
  - FALL [None]
